FAERS Safety Report 8182959-2 (Version None)
Quarter: 2012Q1

REPORT INFORMATION
  Report Type: 
  Country: None (occurrence: None)
  Receive Date: 20120305
  Receipt Date: 20120125
  Transmission Date: 20120608
  Serious: No
  Sender: FDA-Public Use
  Company Number: US-BRISTOL-MYERS SQUIBB COMPANY-16355059

PATIENT
  Sex: Female

DRUGS (1)
  1. KOMBIGLYZE XR [Suspect]

REACTIONS (8)
  - DIZZINESS [None]
  - INSOMNIA [None]
  - DYSPNOEA [None]
  - FATIGUE [None]
  - FLATULENCE [None]
  - NAUSEA [None]
  - DIARRHOEA [None]
  - ASTHENIA [None]
